FAERS Safety Report 16961137 (Version 2)
Quarter: 2019Q4

REPORT INFORMATION
  Report Type: Spontaneous
  Country: US (occurrence: US)
  Receive Date: 20191025
  Receipt Date: 20191029
  Transmission Date: 20200122
  Serious: Yes (Hospitalization, Other)
  Sender: FDA-Public Use
  Company Number: US-SUNOVION-2019SUN004528

PATIENT
  Age: 38 Year
  Sex: Female
  Weight: 99.77 kg

DRUGS (1)
  1. LUNESTA [Suspect]
     Active Substance: ESZOPICLONE
     Indication: INSOMNIA
     Dosage: UNK, SINGLE
     Route: 048
     Dates: start: 20190625, end: 20190625

REACTIONS (7)
  - Paralysis [Recovering/Resolving]
  - Memory impairment [Unknown]
  - Fatigue [Unknown]
  - Embolic stroke [Unknown]
  - Confusional state [Unknown]
  - Thrombosis [Unknown]
  - Pain [Unknown]

NARRATIVE: CASE EVENT DATE: 20190626
